FAERS Safety Report 7249448-0 (Version None)
Quarter: 2011Q1

REPORT INFORMATION
  Report Type: 
  Country: None (occurrence: None)
  Receive Date: 20110128
  Receipt Date: 20110118
  Transmission Date: 20110831
  Serious: Yes (Life-Threatening, Hospitalization)
  Sender: FDA-Public Use
  Company Number: BE-SANOFI-AVENTIS-2010SA069872

PATIENT
  Age: 62 Year
  Sex: Male

DRUGS (2)
  1. MULTAQ [Suspect]
     Indication: ATRIAL FIBRILLATION
     Route: 048
     Dates: start: 20101001
  2. SINTROM [Concomitant]

REACTIONS (3)
  - CARDIO-RESPIRATORY ARREST [None]
  - ARTERIOSCLEROSIS [None]
  - MYOCARDIAL INFARCTION [None]
